FAERS Safety Report 13886863 (Version 1)
Quarter: 2017Q3

REPORT INFORMATION
  Report Type: Spontaneous
  Country: US (occurrence: US)
  Receive Date: 20170821
  Receipt Date: 20170821
  Transmission Date: 20171127
  Serious: Yes (Death, Hospitalization, Other)
  Sender: FDA-Public Use
  Company Number: US-JNJFOC-20170814923

PATIENT

DRUGS (9)
  1. IBRUTINIB [Suspect]
     Active Substance: IBRUTINIB
     Indication: MARGINAL ZONE LYMPHOMA
     Route: 048
     Dates: start: 201404, end: 201611
  2. IBRUTINIB [Suspect]
     Active Substance: IBRUTINIB
     Indication: WALDENSTROM^S MACROGLOBULINAEMIA
     Route: 048
     Dates: start: 201404, end: 201611
  3. IBRUTINIB [Suspect]
     Active Substance: IBRUTINIB
     Indication: T-CELL LYMPHOMA
     Route: 048
     Dates: start: 201404, end: 201611
  4. IBRUTINIB [Suspect]
     Active Substance: IBRUTINIB
     Indication: B-CELL LYMPHOMA
     Route: 048
     Dates: start: 201404, end: 201611
  5. IBRUTINIB [Suspect]
     Active Substance: IBRUTINIB
     Indication: PLASMA CELL MYELOMA
     Route: 048
     Dates: start: 201404, end: 201611
  6. IBRUTINIB [Suspect]
     Active Substance: IBRUTINIB
     Indication: DIFFUSE LARGE B-CELL LYMPHOMA
     Route: 048
     Dates: start: 201404, end: 201611
  7. IBRUTINIB [Suspect]
     Active Substance: IBRUTINIB
     Indication: CENTRAL NERVOUS SYSTEM LYMPHOMA
     Route: 048
     Dates: start: 201404, end: 201611
  8. IBRUTINIB [Suspect]
     Active Substance: IBRUTINIB
     Indication: MANTLE CELL LYMPHOMA
     Route: 048
     Dates: start: 201404, end: 201611
  9. IBRUTINIB [Suspect]
     Active Substance: IBRUTINIB
     Indication: CHRONIC LYMPHOCYTIC LEUKAEMIA
     Route: 048
     Dates: start: 201404, end: 201611

REACTIONS (9)
  - Sinusitis [Unknown]
  - Product use in unapproved indication [Unknown]
  - Off label use [Unknown]
  - Pneumonia cryptococcal [Unknown]
  - Skin infection [Unknown]
  - Pneumonia [Fatal]
  - Febrile neutropenia [Fatal]
  - Upper respiratory tract infection [Unknown]
  - Aspergillus infection [Unknown]

NARRATIVE: CASE EVENT DATE: 201404
